FAERS Safety Report 22955396 (Version 2)
Quarter: 2024Q3

REPORT INFORMATION
  Report Type: Spontaneous
  Country: US (occurrence: US)
  Receive Date: 20230918
  Receipt Date: 20240828
  Transmission Date: 20241017
  Serious: Yes (Death, Hospitalization, Other)
  Sender: GLAXOSMITHKLINE
  Company Number: US-GLAXOSMITHKLINE-US2023GSK128022

PATIENT

DRUGS (1)
  1. WELLBUTRIN XL [Suspect]
     Active Substance: BUPROPION HYDROCHLORIDE
     Indication: Product used for unknown indication
     Dosage: 300 MG
     Route: 048

REACTIONS (22)
  - Death [Fatal]
  - Accidental exposure to product by child [Fatal]
  - Overdose [Fatal]
  - Musculoskeletal stiffness [Fatal]
  - Tremor [Fatal]
  - Seizure [Unknown]
  - Seizure like phenomena [Fatal]
  - Apnoea [Fatal]
  - Bradycardia [Fatal]
  - Ventricular tachycardia [Fatal]
  - Cardiac arrest [Fatal]
  - Hypothermia [Fatal]
  - Brain oedema [Fatal]
  - Brain herniation [Fatal]
  - Clonus [Fatal]
  - Neurological symptom [Unknown]
  - Cardiovascular disorder [Unknown]
  - Unresponsive to stimuli [Unknown]
  - Aspiration [Unknown]
  - Acidosis [Unknown]
  - Oliguria [Unknown]
  - Brain injury [Unknown]
